FAERS Safety Report 5530475-6 (Version None)
Quarter: 2007Q4

REPORT INFORMATION
  Report Type: 
  Country: None (occurrence: None)
  Receive Date: 20071127
  Receipt Date: 20071127
  Transmission Date: 20080405
  Serious: No
  Sender: FDA-Public Use
  Company Number: None

PATIENT
  Age: 85 Year
  Sex: Male

DRUGS (1)
  1. AMLODIPINE [Suspect]
     Indication: HYPERTENSION
     Dosage: 5MG EVERY DAY PO
     Route: 048
     Dates: start: 20071007, end: 20071106

REACTIONS (4)
  - COUGH [None]
  - HEADACHE [None]
  - PALPITATIONS [None]
  - WHEEZING [None]
